FAERS Safety Report 6230792-0 (Version None)
Quarter: 2009Q2

REPORT INFORMATION
  Report Type: 
  Country: None (occurrence: None)
  Receive Date: 20090611
  Receipt Date: 20090527
  Transmission Date: 20091009
  Serious: No
  Sender: FDA-Public Use
  Company Number: 2009-197597-NL

PATIENT
  Age: 38 Year
  Sex: Male

DRUGS (8)
  1. VECURONIUM BROMIDE [Suspect]
     Indication: ANAESTHESIA
     Dosage: 10 MG ONCE ; 2 MG ONCE ; 2 MG ONCE
  2. NITRIC OXIDE [Concomitant]
  3. PROPOFOL [Concomitant]
  4. PENTAZOCINE LACTATE [Concomitant]
  5. MIDAZOLAM HCL [Concomitant]
  6. ATROPINE [Concomitant]
  7. OXYGEN [Concomitant]
  8. SEVOFLURANE [Concomitant]

REACTIONS (3)
  - ATELECTASIS [None]
  - PNEUMONIA ASPIRATION [None]
  - RESPIRATION ABNORMAL [None]
